FAERS Safety Report 19577803 (Version 3)
Quarter: 2021Q3

REPORT INFORMATION
  Report Type: Spontaneous
  Country: US (occurrence: US)
  Receive Date: 20210719
  Receipt Date: 20210910
  Transmission Date: 20211014
  Serious: No
  Sender: FDA-Public Use
  Company Number: US-BAYER-2021-178122

PATIENT
  Age: 82 Year
  Sex: Female

DRUGS (1)
  1. MIRALAX [Suspect]
     Active Substance: POLYETHYLENE GLYCOL 3350
     Indication: PRODUCT USED FOR UNKNOWN INDICATION
     Dosage: 1 DF, QD
     Route: 048
     Dates: start: 20210625, end: 20210715

REACTIONS (3)
  - Retching [Recovered/Resolved]
  - Incorrect product administration duration [None]
  - Product taste abnormal [None]

NARRATIVE: CASE EVENT DATE: 20210625
